FAERS Safety Report 9196560 (Version 1)
Quarter: 2013Q1

REPORT INFORMATION
  Report Type: Spontaneous
  Country: US (occurrence: None)
  Receive Date: 20120709
  Receipt Date: 20120709
  Transmission Date: 20140127
  Serious: Yes (Hospitalization)
  Sender: FDA-Public Use
  Company Number: 2012HGS-003590

PATIENT
  Age: 43 Year
  Sex: Female
  Weight: 131.54 kg

DRUGS (9)
  1. BENLYSTA [Suspect]
     Indication: SYSTEMIC LUPUS ERYTHEMATOSUS
     Dosage: 1 IN 28 D, INTRAVENOUS DRIP
     Route: 041
     Dates: start: 20120120
  2. PLAQUENIL (HYDROXYCHLOROQUINE SULFATE) (HYDROXYCHLOROQUINE SULFATE) [Concomitant]
  3. NEXIUM ESOMEPRAZOLE MAGNESIUM) (ESOMEPRAZOLE MAGNESIUM) [Concomitant]
  4. AMITRIPTYLINE (AMITRIPTYLINE) (AMITRIPTYLINE) [Concomitant]
  5. LUNESTA ESZOPICLONE) (ESZOFICLONE) [Concomitant]
  6. FOLIC ACID (FOLIC ACID) (FOLIC ACID) [Concomitant]
  7. VITAMIN D (ERGOCALCIFEROL) (ERGOCALCIFEROL) [Concomitant]
  8. TRAMADOL (TRAMADOL) (TRAMADOL) [Concomitant]
  9. NUCYNTA (TAPENTADOL HYDROCHLORIDE) (TAPENTADOL HYDROCHLORIDE) [Concomitant]

REACTIONS (5)
  - Pneumonia [None]
  - Feeling abnormal [None]
  - Heart rate increased [None]
  - Cough [None]
  - Pyrexia [None]
